FAERS Safety Report 9100528 (Version 6)
Quarter: 2013Q3

REPORT INFORMATION
  Report Type: Report from Study
  Country: US (occurrence: US)
  Receive Date: 20130215
  Receipt Date: 20130930
  Transmission Date: 20140515
  Serious: Yes (Hospitalization)
  Sender: FDA-Public Use
  Company Number: US-JNJFOC-20130206900

PATIENT
  Age: 17 Year
  Sex: Female
  Weight: 61.24 kg

DRUGS (5)
  1. REMICADE [Suspect]
     Indication: INFLAMMATORY BOWEL DISEASE
     Route: 042
     Dates: start: 20110505, end: 20111005
  2. HUMIRA [Concomitant]
     Dates: start: 20120124
  3. AZATHIOPRINE [Concomitant]
  4. 5-ASA [Concomitant]
     Route: 048
  5. PREDNISONE [Concomitant]

REACTIONS (2)
  - Biliary colic [Recovered/Resolved]
  - Inflammatory bowel disease [Recovered/Resolved]
